FAERS Safety Report 7320490-4 (Version None)
Quarter: 2011Q1

REPORT INFORMATION
  Report Type: 
  Country: None (occurrence: None)
  Receive Date: 20110228
  Receipt Date: 20110221
  Transmission Date: 20110831
  Serious: Yes (Hospitalization)
  Sender: FDA-Public Use
  Company Number: B0702548A

PATIENT
  Age: 3 Year
  Sex: Male

DRUGS (3)
  1. IBRUPROFEN [Concomitant]
     Route: 048
     Dates: start: 20100901
  2. ACETAMINOPHEN [Concomitant]
     Route: 048
     Dates: start: 20100901
  3. AMOXICILLIN TRIHYDRATE [Suspect]
     Indication: SCARLET FEVER
     Route: 048
     Dates: start: 20100901

REACTIONS (3)
  - SKIN EXFOLIATION [None]
  - SKIN LESION [None]
  - CONDITION AGGRAVATED [None]
